FAERS Safety Report 9410430 (Version 1)
Quarter: 2013Q3

REPORT INFORMATION
  Report Type: Report from Study
  Country: FR (occurrence: FR)
  Receive Date: 20130719
  Receipt Date: 20130719
  Transmission Date: 20140515
  Serious: Yes (Other)
  Sender: FDA-Public Use
  Company Number: CA-ASTRAZENECA-2013SE51853

PATIENT
  Sex: 0

DRUGS (8)
  1. NAROPIN [Suspect]
     Indication: LOCAL ANAESTHESIA
     Route: 053
  2. NAROPIN [Suspect]
     Indication: LOCAL ANAESTHESIA
     Dosage: 8-10 ML/H FOR 48 TO 72 H
     Route: 053
  3. BUPIVACAINE [Concomitant]
     Indication: SPINAL ANAESTHESIA
     Dosage: 2-3 ML
     Route: 037
  4. XYLOCAINE [Concomitant]
     Indication: LOCAL ANAESTHESIA
     Dosage: 0.5-1 CC 1%
  5. ACETAMINOPHEN [Concomitant]
     Dosage: 500 MG FOUR TIMES A DAY
  6. CELEBREX [Concomitant]
  7. FRAGMIN [Concomitant]
     Indication: THROMBOSIS PROPHYLAXIS
     Dosage: 5000 UNIT DAILY FOR 10 DAYS
     Route: 058
  8. VANCOMYCIN [Concomitant]
     Route: 042

REACTIONS (1)
  - Neuromuscular block prolonged [Unknown]
